FAERS Safety Report 9458798 (Version 2)
Quarter: 2013Q4

REPORT INFORMATION
  Report Type: Spontaneous
  Country: US (occurrence: None)
  Receive Date: 20130812
  Receipt Date: 20131030
  Transmission Date: 20140711
  Serious: Yes (Other)
  Sender: FDA-Public Use
  Company Number: ACO_37777_2013

PATIENT
  Sex: Female
  Weight: 83 kg

DRUGS (12)
  1. AMPYRA (DALFAMPRIDINE) TABLET, 10MG [Suspect]
     Indication: GAIT DISTURBANCE
     Route: 048
     Dates: start: 2012
  2. MAXALT (RIZATRIPTAN BENZOATE) [Concomitant]
  3. TOPAMAX (TOPIRAMATE) [Concomitant]
  4. NEUROTRONIN (GABPENTIN) [Concomitant]
  5. LOVAZA (OMEGA-3-ACID ETHYK ESTER) [Concomitant]
  6. AGGRENOX (ACETYLSALICYLIC ACID, DIPYRIDAMOLE) [Concomitant]
  7. TOPROL (METOPROLOL SUCCINATE) [Concomitant]
  8. LEXAPRO (ESCITALOPRAM OXALATE) [Concomitant]
  9. VITAMIN B12 (CYANCOBALMIN) [Concomitant]
  10. AVONEX (INTERFERON BETA-1A) [Concomitant]
  11. ACTHAR H.P [Suspect]
  12. NUEDEXTRA (DEXTROMETHORPHAN HYDROBROMIDE, QUINIDINE SULFATE) [Concomitant]

REACTIONS (2)
  - Urinary retention [None]
  - Micturition urgency [None]
